FAERS Safety Report 8301517-X (Version None)
Quarter: 2012Q2

REPORT INFORMATION
  Report Type: 
  Country: None (occurrence: None)
  Receive Date: 20120420
  Receipt Date: 20120417
  Transmission Date: 20120825
  Serious: Yes (Hospitalization)
  Sender: FDA-Public Use
  Company Number: PHHO2012US005353

PATIENT
  Sex: Female
  Weight: 76.1 kg

DRUGS (8)
  1. AFINITOR [Suspect]
     Indication: METASTATIC RENAL CELL CARCINOMA
     Dosage: 10 MG, QD
     Route: 048
     Dates: start: 20120228
  2. STOOL SOFTENER [Concomitant]
     Indication: CONSTIPATION PROPHYLAXIS
     Dosage: 2 DF, QD (2 IN 1D)
     Route: 048
  3. CALCIUM [Concomitant]
     Indication: SUPPLEMENTATION THERAPY
     Route: 048
  4. IRON SUPPLEMENTS [Concomitant]
     Indication: SUPPLEMENTATION THERAPY
     Dosage: 1 DF, QD (1 IN 1D)
     Route: 048
  5. ZANTAC [Concomitant]
     Dosage: 150 MG, BID (150 MG, 2 IN 1D)
     Route: 048
  6. CHEMOTHERAPEUTICS NOS [Concomitant]
  7. PRILOSEC [Concomitant]
     Dosage: 20 MG, QD (20 MG, 1 IN 1D)
     Route: 048
  8. MULTI-VITAMINS [Concomitant]
     Indication: SUPPLEMENTATION THERAPY
     Dosage: 1 DF, QD (1 IN 1D)
     Route: 048

REACTIONS (1)
  - HAEMORRHAGIC STROKE [None]
